FAERS Safety Report 16425258 (Version 1)
Quarter: 2019Q2

REPORT INFORMATION
  Report Type: Spontaneous
  Country: US (occurrence: US)
  Receive Date: 20190613
  Receipt Date: 20190613
  Transmission Date: 20190711
  Serious: Yes (Death)
  Sender: FDA-Public Use
  Company Number: US-CELGENEUS-USA-20190603471

PATIENT
  Age: 83 Year
  Sex: Male

DRUGS (3)
  1. VIDAZA [Suspect]
     Active Substance: AZACITIDINE
     Indication: LUNG NEOPLASM MALIGNANT
     Dosage: 72.25 MILLIGRAM
     Route: 058
     Dates: start: 20181218, end: 20190228
  2. NIVOLUMAB [Suspect]
     Active Substance: NIVOLUMAB
     Indication: LUNG NEOPLASM MALIGNANT
     Dosage: 240 MILLIGRAM
     Route: 041
     Dates: start: 20181217, end: 20190304
  3. ENTINOSTAT [Suspect]
     Active Substance: ENTINOSTAT
     Indication: LUNG NEOPLASM MALIGNANT
     Dosage: 5 MILLIGRAM
     Route: 048
     Dates: start: 20181219, end: 20190228

REACTIONS (1)
  - Lung neoplasm malignant [Fatal]

NARRATIVE: CASE EVENT DATE: 20190511
